FAERS Safety Report 16067204 (Version 1)
Quarter: 2019Q1

REPORT INFORMATION
  Report Type: Spontaneous
  Country: GB (occurrence: GB)
  Receive Date: 20190313
  Receipt Date: 20190313
  Transmission Date: 20190418
  Serious: Yes (Disabling, Other)
  Sender: FDA-Public Use
  Company Number: GB-MYLANLABS-2019M1023033

PATIENT
  Age: 38 Year
  Sex: Male
  Weight: 72 kg

DRUGS (7)
  1. LANSOPRAZOLE. [Concomitant]
     Active Substance: LANSOPRAZOLE
     Dosage: UNK
  2. AZATHIOPRINE. [Suspect]
     Active Substance: AZATHIOPRINE
     Dosage: 100 MILLIGRAM, QD
     Dates: start: 2018, end: 2018
  3. OCTASA [Concomitant]
     Active Substance: MESALAMINE
     Indication: COLITIS ULCERATIVE
     Dosage: 2400 MILLIGRAM, QD
     Dates: start: 2013
  4. BUDESONIDE. [Concomitant]
     Active Substance: BUDESONIDE
     Dosage: CURRENTLY TAPERING DOWN FROM 1 MONTH ON 9MG/DAY, ON 6MG CURRENTLY.
  5. AZATHIOPRINE. [Suspect]
     Active Substance: AZATHIOPRINE
     Dosage: 50 , QW
     Route: 048
     Dates: start: 20180711, end: 2018
  6. BUDESONIDE. [Concomitant]
     Active Substance: BUDESONIDE
     Dosage: CURRENTLY TAPERING DOWN FROM 1 MONTH ON 9MG/DAY, ON 6MG CURRENTLY.
  7. AZATHIOPRINE. [Suspect]
     Active Substance: AZATHIOPRINE
     Indication: COLITIS ULCERATIVE
     Dosage: 150 MILLIGRAM, QD
     Route: 048
     Dates: start: 2018, end: 20180814

REACTIONS (9)
  - Chills [Unknown]
  - Asthenia [Recovering/Resolving]
  - Oral pain [Recovering/Resolving]
  - Hot flush [Unknown]
  - Diarrhoea haemorrhagic [Recovering/Resolving]
  - Pain in extremity [Recovering/Resolving]
  - Swollen tongue [Recovering/Resolving]
  - Nausea [Unknown]
  - Pyrexia [Recovering/Resolving]

NARRATIVE: CASE EVENT DATE: 20180729
